FAERS Safety Report 5634410-1 (Version None)
Quarter: 2008Q1

REPORT INFORMATION
  Report Type: 
  Country: None (occurrence: None)
  Receive Date: 20080222
  Receipt Date: 20080215
  Transmission Date: 20080703
  Serious: Yes (Death, Other)
  Sender: FDA-Public Use
  Company Number: JP-JNJFOC-20080103943

PATIENT
  Sex: Female
  Weight: 48 kg

DRUGS (20)
  1. ITRIZOLE [Suspect]
     Indication: ORAL CANDIDIASIS
     Route: 048
  2. OXYCONTIN [Concomitant]
     Indication: METASTASES TO LUNG
     Route: 048
  3. OXYCONTIN [Concomitant]
     Indication: TONGUE NEOPLASM MALIGNANT STAGE UNSPECIFIED
     Route: 048
  4. MAGLAX [Concomitant]
     Indication: PROPHYLAXIS
     Route: 048
  5. FAMOTIDINE [Concomitant]
     Indication: PROPHYLAXIS
     Route: 048
  6. LOXONIN [Concomitant]
     Indication: METASTASES TO BONE
     Route: 048
  7. LOXONIN [Concomitant]
     Indication: METASTASES TO LUNG
     Route: 048
  8. LOXONIN [Concomitant]
     Indication: TONGUE NEOPLASM MALIGNANT STAGE UNSPECIFIED
     Route: 048
  9. NOVAMIN [Concomitant]
     Indication: PROPHYLAXIS
     Route: 048
  10. AMINOFLUID [Concomitant]
     Indication: METASTASES TO LUNG
     Route: 041
  11. AMINOFLUID [Concomitant]
     Indication: TONGUE NEOPLASM MALIGNANT STAGE UNSPECIFIED
     Route: 041
  12. FLUMARIN [Concomitant]
     Indication: HYPERCALCAEMIA
     Route: 042
  13. FLUMARIN [Concomitant]
     Indication: METASTASES TO LUNG
     Route: 042
  14. FLUMARIN [Concomitant]
     Indication: TONGUE NEOPLASM MALIGNANT STAGE UNSPECIFIED
     Route: 042
  15. BISPHONAL [Concomitant]
     Indication: METASTASES TO BONE
     Route: 041
  16. BISPHONAL [Concomitant]
     Indication: HYPERCALCAEMIA
     Route: 041
  17. ELCITONIN [Concomitant]
     Indication: METASTASES TO BONE
     Route: 042
  18. ELCITONIN [Concomitant]
     Indication: HYPERCALCAEMIA
     Route: 042
  19. ISOTONIC SODIUM CHLORIDE SOLUTION [Concomitant]
     Indication: METASTASES TO BONE
     Route: 042
  20. ISOTONIC SODIUM CHLORIDE SOLUTION [Concomitant]
     Indication: RENAL FAILURE ACUTE
     Route: 042

REACTIONS (3)
  - HYPERCALCAEMIA [None]
  - METASTASES TO BONE [None]
  - RENAL FAILURE ACUTE [None]
